FAERS Safety Report 6262462-7 (Version None)
Quarter: 2009Q3

REPORT INFORMATION
  Report Type: 
  Country: None (occurrence: None)
  Receive Date: 20090709
  Receipt Date: 20090622
  Transmission Date: 20100115
  Serious: Yes (Hospitalization)
  Sender: FDA-Public Use
  Company Number: BE-GENENTECH-284427

PATIENT
  Age: 90 Year
  Sex: Female

DRUGS (4)
  1. LUCENTIS [Suspect]
     Indication: DRUG USE FOR UNKNOWN INDICATION
     Dosage: UNK
     Route: 031
     Dates: start: 20090220
  2. LUCENTIS [Suspect]
     Dosage: UNK
     Route: 031
     Dates: start: 20090323
  3. LUCENTIS [Suspect]
     Dosage: UNK
     Route: 031
     Dates: start: 20090427
  4. ASPIRIN [Concomitant]
     Indication: DRUG USE FOR UNKNOWN INDICATION

REACTIONS (3)
  - BRAIN OEDEMA [None]
  - CEREBROVASCULAR ACCIDENT [None]
  - HAEMOLYSIS [None]
